FAERS Safety Report 8641896 (Version 3)
Quarter: 2013Q1

REPORT INFORMATION
  Report Type: Spontaneous
  Country: US (occurrence: US)
  Receive Date: 20120628
  Receipt Date: 20130123
  Transmission Date: 20140127
  Serious: Yes (Other)
  Sender: FDA-Public Use
  Company Number: US-ELI_LILLY_AND_COMPANY-US201106002211

PATIENT
  Sex: Female

DRUGS (27)
  1. FORTEO [Suspect]
     Indication: OSTEOPOROSIS
     Dosage: 20 UG, QD
     Dates: start: 20110506, end: 20120603
  2. FORTEO [Suspect]
     Dosage: 20 UG, QD
  3. FORTEO [Suspect]
     Dosage: 20 UG, QD
  4. FORTEO [Suspect]
     Dosage: 20 UG, QD
  5. FORTEO [Suspect]
     Dosage: 20 UG, QD
  6. FORTEO [Suspect]
     Dosage: 20 UG, QD
  7. PROVENTIL                               /USA/ [Concomitant]
     Dosage: UNK, UNKNOWN
  8. DITROPAN [Concomitant]
     Dosage: 15 MG, BID
  9. NORVASC [Concomitant]
     Dosage: 2.5 MG, QD
  10. LEVOTHYROXINE [Concomitant]
     Dosage: UNK, UNKNOWN
  11. LEVSIN [Concomitant]
     Dosage: UNK, UNKNOWN
  12. LIDOCAINE VISCOUS [Concomitant]
     Indication: NON-CARDIAC CHEST PAIN
     Dosage: UNK, UNKNOWN
  13. PRILOSEC [Concomitant]
     Dosage: 40 MG, BID
  14. DONNATAL [Concomitant]
     Dosage: UNK, UNKNOWN
  15. SPIRONOLACTONE [Concomitant]
     Dosage: UNK, QD
  16. CROMOLYN [Concomitant]
     Dosage: UNK, UNKNOWN
  17. SOMA [Concomitant]
     Dosage: 350 MG, TID
  18. HYDROMORPHONE [Concomitant]
     Indication: PAIN
     Dosage: UNK, PRN
  19. MELOXICAM [Concomitant]
     Dosage: UNK
  20. CELEXA [Concomitant]
     Indication: DEPRESSION
     Dosage: UNK, UNKNOWN
  21. TRAZODONE [Concomitant]
     Indication: DEPRESSION
     Dosage: UNK, UNKNOWN
  22. FOLIC [Concomitant]
     Dosage: UNK, UNKNOWN
  23. MIRALAX [Concomitant]
     Indication: CONSTIPATION
     Dosage: UNK, UNKNOWN
  24. CALCIUM [Concomitant]
     Dosage: 1200 MG, QD
  25. VITAMIN D3 [Concomitant]
     Dosage: UNK, UNKNOWN
  26. VOLTAREN                                /SCH/ [Concomitant]
     Indication: ARTHRALGIA
     Dosage: UNK, UNKNOWN
  27. FISH OIL [Concomitant]
     Dosage: UNK, UNKNOWN

REACTIONS (34)
  - Pancreatic carcinoma [Unknown]
  - Splenectomy [Unknown]
  - Blood pressure decreased [Unknown]
  - Bone pain [Recovered/Resolved]
  - Pain in extremity [Recovered/Resolved]
  - Gait disturbance [Unknown]
  - White blood cell count decreased [Unknown]
  - White blood cell count increased [Unknown]
  - Neutrophil count decreased [Unknown]
  - Injection site pruritus [Recovered/Resolved]
  - Arthritis [Unknown]
  - Local swelling [Unknown]
  - Pain in extremity [Unknown]
  - Gait disturbance [Unknown]
  - Influenza [Unknown]
  - Bunion [Unknown]
  - Blood sodium decreased [Unknown]
  - Jaw disorder [Unknown]
  - Pain in jaw [Not Recovered/Not Resolved]
  - Hiccups [Unknown]
  - Foot deformity [Unknown]
  - Dehydration [Unknown]
  - Vascular injury [Unknown]
  - Asthenia [Unknown]
  - Vomiting [Unknown]
  - Injection site bruising [Unknown]
  - Injection site bruising [Recovered/Resolved]
  - Muscle spasms [Not Recovered/Not Resolved]
  - Nausea [Unknown]
  - Dyspepsia [Unknown]
  - Abdominal pain [Unknown]
  - Asthma [Unknown]
  - Depression [Unknown]
  - Constipation [Unknown]
